FAERS Safety Report 5971468-4 (Version None)
Quarter: 2008Q4

REPORT INFORMATION
  Report Type: 
  Country: None (occurrence: None)
  Receive Date: 20081201
  Receipt Date: 20081119
  Transmission Date: 20090506
  Serious: Yes (Other)
  Sender: FDA-Public Use
  Company Number: FI-JNJFOC-20081105225

PATIENT
  Age: 56 Year
  Sex: Male

DRUGS (2)
  1. REMICADE [Suspect]
     Indication: ARTHRALGIA
     Dosage: TAKEN FOR 4 YEARS
     Route: 042
  2. ADALIMUMAB [Suspect]
     Indication: ARTHRALGIA

REACTIONS (3)
  - ANTINUCLEAR ANTIBODY INCREASED [None]
  - NERVOUS SYSTEM DISORDER [None]
  - THERAPEUTIC RESPONSE DECREASED [None]
